FAERS Safety Report 10420659 (Version 1)
Quarter: 2014Q3

REPORT INFORMATION
  Report Type: Spontaneous
  Country: US (occurrence: None)
  Receive Date: 20140829
  Receipt Date: 20140829
  Transmission Date: 20150326
  Serious: Yes (Other)
  Sender: FDA-Public Use
  Company Number: None

PATIENT
  Age: 60 Year
  Sex: Female
  Weight: 48.99 kg

DRUGS (1)
  1. LATISSE [Suspect]
     Active Substance: BIMATOPROST
     Indication: MADAROSIS
     Dosage: ONE DROP PER NIGHT ON EACH EYE?ONCE DAILY?DROP LAID ON EYELASHES
     Dates: start: 20140701, end: 20140820

REACTIONS (3)
  - Eye swelling [None]
  - Skin disorder [None]
  - Skin discolouration [None]

NARRATIVE: CASE EVENT DATE: 20140820
